FAERS Safety Report 18917164 (Version 2)
Quarter: 2021Q1

REPORT INFORMATION
  Report Type: Spontaneous
  Country: JP (occurrence: JP)
  Receive Date: 20210219
  Receipt Date: 20210315
  Transmission Date: 20210420
  Serious: Yes (Death, Hospitalization, Other)
  Sender: FDA-Public Use
  Company Number: JP-GILEAD-2021-0517748

PATIENT
  Age: 69 Year
  Sex: Male
  Weight: 50.9 kg

DRUGS (13)
  1. ZITHROMAC [Concomitant]
     Active Substance: AZITHROMYCIN DIHYDRATE
  2. DECADRON [Concomitant]
     Active Substance: DEXAMETHASONE
  3. NEXIUM [Concomitant]
     Active Substance: ESOMEPRAZOLE MAGNESIUM
  4. E KEPPRA [Concomitant]
     Active Substance: LEVETIRACETAM
  5. CEFTRIAXONE SODIUM. [Concomitant]
     Active Substance: CEFTRIAXONE SODIUM
  6. HEPARIN [Concomitant]
     Active Substance: HEPARIN SODIUM
  7. VEKLURY [Suspect]
     Active Substance: REMDESIVIR
     Dosage: 100 MG, QD
     Route: 041
     Dates: start: 20210120, end: 20210123
  8. FYCOMPA [Concomitant]
     Active Substance: PERAMPANEL
  9. VEKLURY [Suspect]
     Active Substance: REMDESIVIR
     Indication: COVID-19
     Dosage: 200 MG, QD
     Route: 041
     Dates: start: 20210119, end: 20210119
  10. TRANEXAMIC ACID. [Concomitant]
     Active Substance: TRANEXAMIC ACID
  11. CARBAZOCHROME SULFONATE NA [Concomitant]
  12. GASTER [Concomitant]
     Active Substance: FAMOTIDINE
  13. ALBUMIN [Concomitant]
     Active Substance: ALBUMIN HUMAN

REACTIONS (2)
  - Death [Fatal]
  - Acute kidney injury [Recovering/Resolving]

NARRATIVE: CASE EVENT DATE: 20210121
